FAERS Safety Report 7300900-9 (Version None)
Quarter: 2011Q1

REPORT INFORMATION
  Report Type: 
  Country: None (occurrence: None)
  Receive Date: 20110103
  Receipt Date: 20100211
  Transmission Date: 20110831
  Serious: Yes (Other)
  Sender: FDA-Public Use
  Company Number: US-004030

PATIENT
  Age: 77 Year
  Sex: Female

DRUGS (8)
  1. ZOFRAN [Concomitant]
  2. VITAMIN B12 (VITAMIN B12 NOS) [Concomitant]
  3. OMEPRAZOLE [Concomitant]
  4. COMPAZINE [Concomitant]
  5. MULTIHANCE [Suspect]
     Indication: VISUAL IMPAIRMENT
     Dosage: 10ML ONCE, INTRAVENOUS (NOT OTHERWISE SPECIFIED)
     Route: 042
     Dates: start: 20100210, end: 20100210
  6. MULTIHANCE [Suspect]
     Indication: NUCLEAR MAGNETIC RESONANCE IMAGING BRAIN
     Dosage: 10ML ONCE, INTRAVENOUS (NOT OTHERWISE SPECIFIED)
     Route: 042
     Dates: start: 20100210, end: 20100210
  7. MULTIHANCE [Suspect]
     Indication: OESOPHAGEAL CARCINOMA
     Dosage: 10ML ONCE, INTRAVENOUS (NOT OTHERWISE SPECIFIED)
     Route: 042
     Dates: start: 20100210, end: 20100210
  8. TAXOL [Concomitant]

REACTIONS (1)
  - HYPERSENSITIVITY [None]
